FAERS Safety Report 6823769-5 (Version None)
Quarter: 2010Q3

REPORT INFORMATION
  Report Type: 
  Country: None (occurrence: None)
  Receive Date: 20100708
  Receipt Date: 20060905
  Transmission Date: 20110219
  Serious: No
  Sender: FDA-Public Use
  Company Number: US-PFIZER INC-2006109690

PATIENT
  Sex: Female
  Weight: 52.16 kg

DRUGS (2)
  1. CHANTIX [Suspect]
     Indication: EX-TOBACCO USER
     Dates: start: 20060902
  2. LEXAPRO [Concomitant]

REACTIONS (2)
  - FEELING JITTERY [None]
  - INITIAL INSOMNIA [None]
